FAERS Safety Report 16725393 (Version 1)
Quarter: 2019Q3

REPORT INFORMATION
  Report Type: Spontaneous
  Country: CN (occurrence: CN)
  Receive Date: 20190821
  Receipt Date: 20190821
  Transmission Date: 20191005
  Serious: Yes (Other)
  Sender: FDA-Public Use
  Company Number: CN-BAYER-2019-150722

PATIENT
  Age: 41 Year
  Sex: Male
  Weight: 54 kg

DRUGS (1)
  1. AVELOX [Suspect]
     Active Substance: MOXIFLOXACIN HYDROCHLORIDE
     Indication: LUNG INFECTION
     Dosage: 400 MG, QD
     Route: 048
     Dates: start: 20190805, end: 20190805

REACTIONS (2)
  - Altered state of consciousness [Recovering/Resolving]
  - Depressed level of consciousness [Recovering/Resolving]

NARRATIVE: CASE EVENT DATE: 20190805
